FAERS Safety Report 9138353 (Version 2)
Quarter: 2013Q2

REPORT INFORMATION
  Report Type: Spontaneous
  Country: US (occurrence: US)
  Receive Date: 20130305
  Receipt Date: 20130408
  Transmission Date: 20140414
  Serious: Yes (Hospitalization)
  Sender: FDA-Public Use
  Company Number: US-BIOGENIDEC-2013BI020185

PATIENT
  Age: 52 Year
  Sex: Female

DRUGS (1)
  1. AVONEX [Suspect]
     Indication: MULTIPLE SCLEROSIS
     Route: 030
     Dates: start: 20120427

REACTIONS (4)
  - Intervertebral disc protrusion [Recovered/Resolved]
  - Injection site haemorrhage [Recovered/Resolved]
  - Influenza like illness [Recovered/Resolved]
  - Dermatitis contact [Recovered/Resolved]
